FAERS Safety Report 16844565 (Version 4)
Quarter: 2021Q1

REPORT INFORMATION
  Report Type: Spontaneous
  Country: US (occurrence: US)
  Receive Date: 20190924
  Receipt Date: 20210129
  Transmission Date: 20210419
  Serious: Yes (Other)
  Sender: FDA-Public Use
  Company Number: US-GILEAD-2019-0429379

PATIENT
  Age: 42 Year
  Sex: Male
  Weight: 90.7 kg

DRUGS (57)
  1. POLYETHYLENE GLYCOL COMPOUND [Concomitant]
  2. VITAMIN D3 [Concomitant]
     Active Substance: CHOLECALCIFEROL
  3. AXIRON [Concomitant]
     Active Substance: TESTOSTERONE
  4. FLUCONAZOLE. [Concomitant]
     Active Substance: FLUCONAZOLE
  5. LEVOTHYROXINE. [Concomitant]
     Active Substance: LEVOTHYROXINE
  6. SULFAMETHOXAZOLE [Concomitant]
     Active Substance: SULFAMETHOXAZOLE
  7. ATRIPLA [Suspect]
     Active Substance: EFAVIRENZ\EMTRICITABINE\TENOFOVIR DISOPROXIL FUMARATE
     Indication: HIV INFECTION
     Dosage: UNK
     Route: 048
     Dates: start: 20080801, end: 201203
  8. CLOBETASOL [Concomitant]
     Active Substance: CLOBETASOL
  9. CLONAZEPAM. [Concomitant]
     Active Substance: CLONAZEPAM
  10. CYMBALTA [Concomitant]
     Active Substance: DULOXETINE HYDROCHLORIDE
  11. ESTRADIOL. [Concomitant]
     Active Substance: ESTRADIOL
  12. METANX [Concomitant]
     Active Substance: LEVOMEFOLATE CALCIUM\METHYLCOBALAMIN\PYRIDOXAL PHOSPHATE ANHYDROUS
  13. SENNA S [Concomitant]
     Active Substance: DOCUSATE SODIUM\SENNA LEAF
  14. SENEXON?S [Concomitant]
     Active Substance: DOCUSATE SODIUM\SENNOSIDES A AND B
  15. VALTREX [Concomitant]
     Active Substance: VALACYCLOVIR HYDROCHLORIDE
  16. CALCIUM [Concomitant]
     Active Substance: CALCIUM
  17. TIVICAY [Concomitant]
     Active Substance: DOLUTEGRAVIR SODIUM
  18. ASPIRIN [ACETYLSALICYLIC ACID] [Concomitant]
     Active Substance: ASPIRIN
  19. AVANDIA [Concomitant]
     Active Substance: ROSIGLITAZONE MALEATE
  20. BISACODYL. [Concomitant]
     Active Substance: BISACODYL
  21. FENTANYL. [Concomitant]
     Active Substance: FENTANYL
  22. SERTRALINE [Concomitant]
     Active Substance: SERTRALINE HYDROCHLORIDE
  23. TEMAZEPAM. [Concomitant]
     Active Substance: TEMAZEPAM
  24. JULUCA [Concomitant]
     Active Substance: DOLUTEGRAVIR SODIUM\RILPIVIRINE HYDROCHLORIDE
  25. TRIUMEQ [Concomitant]
     Active Substance: ABACAVIR SULFATE\DOLUTEGRAVIR SODIUM\LAMIVUDINE
  26. AZITHROMYCIN ANHYDROUS. [Concomitant]
     Active Substance: AZITHROMYCIN ANHYDROUS
  27. DULOXETINE. [Concomitant]
     Active Substance: DULOXETINE
  28. GABAPENTIN. [Concomitant]
     Active Substance: GABAPENTIN
  29. LANTUS [Concomitant]
     Active Substance: INSULIN GLARGINE
  30. METHYLPHENIDATE. [Concomitant]
     Active Substance: METHYLPHENIDATE
  31. NOVOLOG [Concomitant]
     Active Substance: INSULIN ASPART
  32. OMEPRAZOLE. [Concomitant]
     Active Substance: OMEPRAZOLE
  33. ONDANSETRON [Concomitant]
     Active Substance: ONDANSETRON
  34. PROCHLORPERAZINE. [Concomitant]
     Active Substance: PROCHLORPERAZINE
  35. VALACYCLOVIR [Concomitant]
     Active Substance: VALACYCLOVIR HYDROCHLORIDE
  36. VIREAD [Suspect]
     Active Substance: TENOFOVIR DISOPROXIL FUMARATE
     Indication: HIV INFECTION
     Dosage: UNK
     Route: 048
     Dates: start: 2005, end: 200706
  37. TRUVADA [Suspect]
     Active Substance: EMTRICITABINE\TENOFOVIR DISOPROXIL FUMARATE
     Indication: HIV INFECTION
     Dosage: UNK
     Route: 048
     Dates: start: 200706, end: 200808
  38. DOCUSATE SODIUM. [Concomitant]
     Active Substance: DOCUSATE SODIUM
  39. SIMVASTATIN. [Concomitant]
     Active Substance: SIMVASTATIN
  40. TOPIRAMATE. [Concomitant]
     Active Substance: TOPIRAMATE
  41. ADDERALL [Concomitant]
     Active Substance: AMPHETAMINE ASPARTATE\AMPHETAMINE SULFATE\DEXTROAMPHETAMINE SACCHARATE\DEXTROAMPHETAMINE SULFATE
  42. PRILOSEC [Concomitant]
     Active Substance: OMEPRAZOLE MAGNESIUM
  43. QUETIAPINE FUMARATE. [Concomitant]
     Active Substance: QUETIAPINE FUMARATE
  44. WARFARIN [Concomitant]
     Active Substance: WARFARIN
  45. ZOLPIDEM [Concomitant]
     Active Substance: ZOLPIDEM TARTRATE
  46. CRIXIVAN [Concomitant]
     Active Substance: INDINAVIR SULFATE
  47. EDURANT [Concomitant]
     Active Substance: RILPIVIRINE HYDROCHLORIDE
  48. NORVIR [Concomitant]
     Active Substance: RITONAVIR
  49. LEVOXYL [Concomitant]
     Active Substance: LEVOTHYROXINE SODIUM
  50. LIPITOR [Concomitant]
     Active Substance: ATORVASTATIN CALCIUM
  51. MORPHINE [Concomitant]
     Active Substance: MORPHINE
  52. OXYCODONE [Concomitant]
     Active Substance: OXYCODONE
  53. PROTONIX [OMEPRAZOLE] [Concomitant]
     Active Substance: OMEPRAZOLE
  54. TRICOR [ADENOSINE] [Concomitant]
     Active Substance: ADENOSINE
  55. REYATAZ [Concomitant]
     Active Substance: ATAZANAVIR SULFATE
  56. CHANTIX [Concomitant]
     Active Substance: VARENICLINE TARTRATE
  57. DEXTROAMPHETAMINE [DEXAMFETAMINE] [Concomitant]
     Active Substance: DEXTROAMPHETAMINE

REACTIONS (12)
  - Anxiety [Not Recovered/Not Resolved]
  - Emotional distress [Not Recovered/Not Resolved]
  - Spinal compression fracture [Not Recovered/Not Resolved]
  - Osteopenia [Not Recovered/Not Resolved]
  - Upper limb fracture [Recovered/Resolved]
  - Decreased activity [Unknown]
  - Quality of life decreased [Unknown]
  - Loss of personal independence in daily activities [Unknown]
  - Anhedonia [Not Recovered/Not Resolved]
  - Osteoporosis [Not Recovered/Not Resolved]
  - Pain [Not Recovered/Not Resolved]
  - Economic problem [Not Recovered/Not Resolved]

NARRATIVE: CASE EVENT DATE: 20080118
